FAERS Safety Report 13765479 (Version 1)
Quarter: 2017Q3

REPORT INFORMATION
  Report Type: Spontaneous
  Country: FR (occurrence: FR)
  Receive Date: 20170718
  Receipt Date: 20170718
  Transmission Date: 20171127
  Serious: Yes (Other)
  Sender: FDA-Public Use
  Company Number: PHHY2016FR023062

PATIENT
  Age: 76 Year
  Sex: Female

DRUGS (1)
  1. FEMARA [Suspect]
     Active Substance: LETROZOLE
     Indication: PRODUCT USED FOR UNKNOWN INDICATION
     Dosage: 1 DF, QD
     Route: 065
     Dates: start: 20160114

REACTIONS (14)
  - Balance disorder [Unknown]
  - Pain in extremity [Unknown]
  - CSF protein decreased [Unknown]
  - Hypoaesthesia [Not Recovered/Not Resolved]
  - Peripheral motor neuropathy [Unknown]
  - Movement disorder [Not Recovered/Not Resolved]
  - Motor dysfunction [Unknown]
  - Gait inability [Unknown]
  - Gait disturbance [Not Recovered/Not Resolved]
  - Neuralgia [Unknown]
  - Weight increased [Unknown]
  - Paraesthesia [Not Recovered/Not Resolved]
  - Areflexia [Unknown]
  - Speech disorder [Unknown]

NARRATIVE: CASE EVENT DATE: 201702
